FAERS Safety Report 12441250 (Version 1)
Quarter: 2016Q2

REPORT INFORMATION
  Report Type: Spontaneous
  Country: JP (occurrence: JP)
  Receive Date: 20160607
  Receipt Date: 20160607
  Transmission Date: 20160815
  Serious: Yes (Hospitalization)
  Sender: FDA-Public Use
  Company Number: JP-ACCORD-041169

PATIENT
  Age: 80 Year
  Sex: Female

DRUGS (3)
  1. BETAMETHASONE. [Concomitant]
     Active Substance: BETAMETHASONE
     Route: 061
  2. METHOTREXATE [Suspect]
     Active Substance: METHOTREXATE
     Indication: RHEUMATOID ARTHRITIS
     Route: 048
  3. ACICLOVIR/ACICLOVIR SODIUM [Concomitant]
     Route: 042

REACTIONS (3)
  - Optic atrophy [Recovering/Resolving]
  - Epstein-Barr virus infection [Recovering/Resolving]
  - Necrotising retinitis [Recovering/Resolving]
